FAERS Safety Report 6546820-9 (Version None)
Quarter: 2010Q1

REPORT INFORMATION
  Report Type: 
  Country: None (occurrence: None)
  Receive Date: 20100122
  Receipt Date: 20100114
  Transmission Date: 20100710
  Serious: Yes (Death, Hospitalization, Other)
  Sender: FDA-Public Use
  Company Number: US-PFIZER INC-2009305717

PATIENT
  Age: 78 Year
  Sex: Female

DRUGS (4)
  1. REVATIO [Suspect]
     Indication: PULMONARY HYPERTENSION
     Dosage: 50MG, UNK
  2. CELEXA [Concomitant]
  3. LEVOTHYROXINE [Concomitant]
  4. OXYCODONE [Concomitant]

REACTIONS (2)
  - DIABETES MELLITUS [None]
  - RENAL FAILURE CHRONIC [None]
